FAERS Safety Report 10405534 (Version 1)
Quarter: 2014Q3

REPORT INFORMATION
  Report Type: Report from Study
  Country: US (occurrence: US)
  Receive Date: 20140825
  Receipt Date: 20140825
  Transmission Date: 20150326
  Serious: Yes (Hospitalization, Other)
  Sender: FDA-Public Use
  Company Number: PHEH2014US016340

PATIENT
  Sex: Female

DRUGS (3)
  1. SPRYCEL [Suspect]
     Active Substance: DASATINIB
     Dosage: UNK UKN, UNK
  2. GLEEVEC [Suspect]
     Active Substance: IMATINIB MESYLATE
     Dosage: 200 MG, DAILY (100 MG IN THE MORNING AND 100 MG IN EVENING)
     Route: 048
  3. GLEEVEC [Suspect]
     Active Substance: IMATINIB MESYLATE
     Dosage: UNK UKN, UNK
     Dates: start: 2012

REACTIONS (5)
  - Fibromyalgia [Unknown]
  - Malaise [Unknown]
  - Fatigue [Unknown]
  - Rheumatoid arthritis [Unknown]
  - Mental impairment [Unknown]
